FAERS Safety Report 6927474 (Version 1)
Quarter: 2020Q3

REPORT INFORMATION
  Report Type: Report from Study
  Country: GB (occurrence: DE)
  Receive Date: 20090304
  Receipt Date: 20090304
  Transmission Date: 20201105
  Serious: Yes (Hospitalization)
  Sender: FDA-Public Use
  Company Number: DE-GENENTECH-278012

PATIENT
  Sex: Female

DRUGS (3)
  1. IBANDRONIC ACID. [Suspect]
     Active Substance: IBANDRONIC ACID
     Indication: METASTASES TO BONE
     Dosage: UNK
     Route: 042
  2. AVASTIN [Suspect]
     Active Substance: BEVACIZUMAB
     Indication: BREAST CANCER METASTATIC
     Dosage: UNK
     Route: 042
  3. CAPECITABINE. [Suspect]
     Active Substance: CAPECITABINE
     Indication: BREAST CANCER METASTATIC
     Dosage: UNK
     Route: 048

REACTIONS (2)
  - General physical health deterioration [None]
  - Metastases to central nervous system [Not Recovered/Not Resolved]
